FAERS Safety Report 18019326 (Version 2)
Quarter: 2020Q3

REPORT INFORMATION
  Report Type: Spontaneous
  Country: JP (occurrence: JP)
  Receive Date: 20200714
  Receipt Date: 20200805
  Transmission Date: 20201103
  Serious: Yes (Hospitalization, Other)
  Sender: FDA-Public Use
  Company Number: NVSJ2020JP006730

PATIENT
  Age: 69 Year
  Sex: Male

DRUGS (2)
  1. COSENTYX [Suspect]
     Active Substance: SECUKINUMAB
     Indication: PSORIASIS
     Dosage: 300 MG, Q4W
     Route: 058
     Dates: start: 20191002, end: 20200420
  2. OLOPATADINE. [Concomitant]
     Active Substance: OLOPATADINE
     Indication: PRURITUS
     Dosage: UNK
     Route: 048
     Dates: start: 20180418

REACTIONS (3)
  - Blood creatinine increased [Unknown]
  - Renal impairment [Unknown]
  - Retroperitoneal fibrosis [Unknown]

NARRATIVE: CASE EVENT DATE: 20200513
